FAERS Safety Report 6229900-7 (Version None)
Quarter: 2009Q2

REPORT INFORMATION
  Report Type: 
  Country: None (occurrence: None)
  Receive Date: 20090615
  Receipt Date: 20090603
  Transmission Date: 20091009
  Serious: Yes (Hospitalization, Other)
  Sender: FDA-Public Use
  Company Number: US-ELI_LILLY_AND_COMPANY-US200906000899

PATIENT
  Sex: Female

DRUGS (5)
  1. FORTEO [Suspect]
     Dates: start: 20090418, end: 20090420
  2. CALCIUM                                 /N/A/ [Concomitant]
     Dosage: 1200 MG, UNK
  3. VITAMIN D [Concomitant]
  4. MULTI-VITAMIN [Concomitant]
  5. THYROID TAB [Concomitant]

REACTIONS (8)
  - ABDOMINAL DISTENSION [None]
  - ABDOMINAL PAIN UPPER [None]
  - APPENDIX DISORDER [None]
  - FAECALOMA [None]
  - GASTRIC ATONY [None]
  - IMPAIRED GASTRIC EMPTYING [None]
  - PAIN [None]
  - VOMITING [None]
